FAERS Safety Report 11206557 (Version 2)
Quarter: 2015Q3

REPORT INFORMATION
  Report Type: Not Available
  Country: CH (occurrence: CH)
  Receive Date: 20150622
  Receipt Date: 20150701
  Transmission Date: 20151125
  Serious: Yes (Other)
  Sender: FDA-Public Use
  Company Number: CH-MUNDIPHARMA DS AND PHARMACOVIGILANCE-DEU-2015-0016877

PATIENT
  Age: 1 Day
  Sex: Male
  Weight: 2.2 kg

DRUGS (4)
  1. MS CONTIN [Suspect]
     Active Substance: MORPHINE SULFATE
     Indication: FOETAL EXPOSURE DURING PREGNANCY
     Dosage: 60 MG, BID
     Route: 064
     Dates: start: 20150311, end: 20150505
  2. ADALAT [Suspect]
     Active Substance: NIFEDIPINE
     Indication: FOETAL EXPOSURE DURING PREGNANCY
     Dosage: 20 MG, BID
     Route: 064
     Dates: start: 20150203, end: 20150505
  3. PANTOPRAZOLE SODIUM. [Suspect]
     Active Substance: PANTOPRAZOLE SODIUM
     Indication: FOETAL EXPOSURE DURING PREGNANCY
     Dosage: UNK
     Route: 064
     Dates: end: 20150505
  4. PRIMPERAN [Suspect]
     Active Substance: METOCLOPRAMIDE HYDROCHLORIDE
     Indication: FOETAL EXPOSURE DURING PREGNANCY
     Dosage: 10 MG, BID
     Route: 064
     Dates: start: 20140830, end: 20150505

REACTIONS (3)
  - Neonatal respiratory distress syndrome [Recovered/Resolved]
  - Exposure during pregnancy [Recovered/Resolved]
  - Premature baby [Recovered/Resolved]

NARRATIVE: CASE EVENT DATE: 20150203
